FAERS Safety Report 24841301 (Version 1)
Quarter: 2025Q1

REPORT INFORMATION
  Report Type: Spontaneous
  Country: US (occurrence: US)
  Receive Date: 20250114
  Receipt Date: 20250114
  Transmission Date: 20250409
  Serious: Yes (Other)
  Sender: PFIZER
  Company Number: US-PFIZER INC-HQ1571603APR2002

PATIENT
  Age: 72 Year
  Sex: Female

DRUGS (7)
  1. METOCLOPRAMIDE HYDROCHLORIDE [Interacting]
     Active Substance: METOCLOPRAMIDE HYDROCHLORIDE
     Indication: Nausea
     Route: 042
  2. SERTRALINE [Interacting]
     Active Substance: SERTRALINE HYDROCHLORIDE
     Indication: Agoraphobia
     Dosage: 100 MG, 1X/DAY
  3. SERTRALINE [Interacting]
     Active Substance: SERTRALINE HYDROCHLORIDE
     Indication: Depression
  4. CELECOXIB [Concomitant]
     Active Substance: CELECOXIB
     Dosage: 200 MG, 2X/DAY
  5. HYDROCORTISONE [Concomitant]
     Active Substance: HYDROCORTISONE
     Dosage: 4 MG, DAILY
  6. MORPHINE SULFATE [Concomitant]
     Active Substance: MORPHINE SULFATE
     Dosage: 50 MG, DAILY
  7. ACETAMINOPHEN [Concomitant]
     Active Substance: ACETAMINOPHEN
     Dosage: EVERY 6 HOURS

REACTIONS (3)
  - Drug interaction [Recovered/Resolved]
  - Serotonin syndrome [Recovered/Resolved]
  - Incorrect route of product administration [Unknown]
